FAERS Safety Report 5891940-5 (Version None)
Quarter: 2008Q3

REPORT INFORMATION
  Report Type: 
  Country: None (occurrence: None)
  Receive Date: 20080922
  Receipt Date: 20080910
  Transmission Date: 20090109
  Serious: Yes (Other)
  Sender: FDA-Public Use
  Company Number: BR-PFIZER INC-2008076947

PATIENT
  Age: 42 Year
  Weight: 80 kg

DRUGS (3)
  1. CHANTIX [Suspect]
     Indication: SMOKING CESSATION THERAPY
     Route: 048
     Dates: start: 20070101, end: 20070101
  2. NICOTINE [Suspect]
     Dates: start: 20070101, end: 20070101
  3. NIQUITIN [Concomitant]
     Route: 065

REACTIONS (1)
  - EMPHYSEMA [None]
